FAERS Safety Report 7227190-X (Version None)
Quarter: 2011Q1

REPORT INFORMATION
  Report Type: 
  Country: None (occurrence: None)
  Receive Date: 20110111
  Receipt Date: 20110111
  Transmission Date: 20110831
  Serious: Yes (Other)
  Sender: FDA-Public Use
  Company Number: None

PATIENT
  Age: 26 Year
  Sex: Female
  Weight: 139.2543 kg

DRUGS (1)
  1. FACTIVE [Suspect]
     Indication: UPPER RESPIRATORY TRACT INFECTION
     Dosage: 1 PILL ONCE A DAY PO
     Route: 048

REACTIONS (5)
  - TREMOR [None]
  - MUSCULAR WEAKNESS [None]
  - EYE PAIN [None]
  - HEADACHE [None]
  - MYALGIA [None]
